FAERS Safety Report 9031567 (Version 1)
Quarter: 2013Q1

REPORT INFORMATION
  Report Type: Report from Study
  Country: BE (occurrence: BE)
  Receive Date: 20130124
  Receipt Date: 20130124
  Transmission Date: 20140127
  Serious: Yes (Death)
  Sender: FDA-Public Use
  Company Number: BE-ROCHE-1182916

PATIENT
  Age: 45 Year
  Sex: 0

DRUGS (2)
  1. AVASTIN [Suspect]
     Indication: GLIOBLASTOMA
     Route: 065
     Dates: start: 20111215
  2. METHYLPREDNISOLONE [Concomitant]
     Indication: GLIOBLASTOMA
     Route: 065

REACTIONS (1)
  - Decreased appetite [Fatal]
